FAERS Safety Report 13833179 (Version 1)
Quarter: 2017Q3

REPORT INFORMATION
  Report Type: Spontaneous
  Country: US (occurrence: US)
  Receive Date: 20170803
  Receipt Date: 20170803
  Transmission Date: 20171127
  Serious: Yes (Disabling, Other)
  Sender: FDA-Public Use
  Company Number: None

PATIENT
  Age: 26 Year
  Sex: Female
  Weight: 68.4 kg

DRUGS (3)
  1. CALCIUM SUPPLEMENT [Concomitant]
     Active Substance: CALCIUM
  2. HEATHER [Suspect]
     Active Substance: NORETHINDRONE
     Indication: CONTRACEPTION
     Dosage: ?          QUANTITY:1 TABLET(S);?
     Route: 048
     Dates: start: 20170712, end: 20170731
  3. PRE-NATAL VITAMINS [Concomitant]

REACTIONS (5)
  - Headache [None]
  - Nausea [None]
  - Mood swings [None]
  - Anxiety [None]
  - Dyspepsia [None]

NARRATIVE: CASE EVENT DATE: 20170722
